FAERS Safety Report 7864839-2 (Version None)
Quarter: 2011Q4

REPORT INFORMATION
  Report Type: 
  Country: None (occurrence: None)
  Receive Date: 20111028
  Receipt Date: 20100902
  Transmission Date: 20120403
  Serious: No
  Sender: FDA-Public Use
  Company Number: US-GLAXOSMITHKLINE-A0879240A

PATIENT
  Age: 84 Year
  Sex: Male

DRUGS (5)
  1. ADVAIR DISKUS 100/50 [Suspect]
     Indication: ASTHMA
     Dosage: 1PUFF PER DAY
     Route: 055
     Dates: start: 20060101
  2. METOPROLOL TARTRATE [Concomitant]
  3. LIBRIUM [Concomitant]
  4. FEXOFENADINE [Concomitant]
  5. SINGULAIR [Concomitant]

REACTIONS (1)
  - SPUTUM DISCOLOURED [None]
